FAERS Safety Report 16610102 (Version 1)
Quarter: 2019Q3

REPORT INFORMATION
  Report Type: Spontaneous
  Country: US (occurrence: US)
  Receive Date: 20190721
  Receipt Date: 20190721
  Transmission Date: 20191004
  Serious: No
  Sender: FDA-Public Use
  Company Number: None

PATIENT
  Age: 71 Year
  Sex: Female
  Weight: 63 kg

DRUGS (7)
  1. MINERAL [Concomitant]
  2. BIOTIN [Concomitant]
     Active Substance: BIOTIN
  3. NATURAL OPTHALMICS WOMEN^S TEAR STIMULATION [Suspect]
     Active Substance: HOMEOPATHICS
     Indication: GLAUCOMA
     Dosage: ?          QUANTITY:3 DROP(S);?
     Route: 047
     Dates: start: 20190701, end: 20190706
  4. BONE COFACTOR [Concomitant]
  5. BIO-C PLUS [Concomitant]
  6. PROOMEGA-D [Concomitant]
  7. LANTANOPROST [Concomitant]
     Active Substance: LATANOPROST

REACTIONS (5)
  - Recalled product administered [None]
  - Dry eye [None]
  - Instillation site erythema [None]
  - Vision blurred [None]
  - Instillation site pain [None]

NARRATIVE: CASE EVENT DATE: 20190706
